FAERS Safety Report 9354292 (Version 2)
Quarter: 2013Q4

REPORT INFORMATION
  Report Type: Spontaneous
  Country: US (occurrence: US)
  Receive Date: 20130618
  Receipt Date: 20131016
  Transmission Date: 20140711
  Serious: No
  Sender: FDA-Public Use
  Company Number: US-BAYER-2013-074542

PATIENT
  Age: 41 Year
  Sex: Female
  Weight: 57 kg

DRUGS (2)
  1. ESTRADIOL HEMIHYDRATE (PATCH) [Suspect]
     Indication: HORMONE REPLACEMENT THERAPY
     Dosage: 1 DF, OW
     Route: 062
     Dates: start: 201005
  2. CALCIUM [Concomitant]
     Indication: SUPPLEMENTATION THERAPY
     Dosage: 600 MG, QD
     Route: 048
     Dates: start: 201005

REACTIONS (2)
  - Alopecia [Not Recovered/Not Resolved]
  - Gastrooesophageal reflux disease [Unknown]
